FAERS Safety Report 12405347 (Version 2)
Quarter: 2016Q3

REPORT INFORMATION
  Report Type: Spontaneous
  Country: JP (occurrence: JP)
  Receive Date: 20160525
  Receipt Date: 20160701
  Transmission Date: 20161109
  Serious: No
  Sender: FDA-Public Use
  Company Number: JP-GILEAD-2016-0215236

PATIENT
  Age: 46 Year
  Sex: Male

DRUGS (5)
  1. EPL                                /07733501/ [Concomitant]
     Dosage: 2 DF, 1D
  2. TEPRENONE [Concomitant]
     Active Substance: TEPRENONE
     Dosage: 100 MG, 1D
  3. CRESTOR [Concomitant]
     Active Substance: ROSUVASTATIN CALCIUM
     Dosage: 2.5 MG, 1D
  4. ALLOPURINOL. [Concomitant]
     Active Substance: ALLOPURINOL
     Dosage: 100 MG, 1D
  5. TENOFOVIR DISOPROXIL FUMARATE. [Suspect]
     Active Substance: TENOFOVIR DISOPROXIL FUMARATE
     Indication: HEPATITIS B
     Dosage: 300 MG, QD
     Route: 048
     Dates: start: 20150311

REACTIONS (1)
  - Supraventricular extrasystoles [Unknown]

NARRATIVE: CASE EVENT DATE: 20160427
